FAERS Safety Report 5534654-3 (Version None)
Quarter: 2007Q4

REPORT INFORMATION
  Report Type: 
  Country: None (occurrence: None)
  Receive Date: 20071205
  Receipt Date: 20071130
  Transmission Date: 20080405
  Serious: Yes (Other)
  Sender: FDA-Public Use
  Company Number: NL-JNJFOC-20071107129

PATIENT
  Sex: Female
  Weight: 56 kg

DRUGS (3)
  1. RISPERDAL [Suspect]
     Indication: DRUG USE FOR UNKNOWN INDICATION
  2. CARBAMAZEPINE [Concomitant]
  3. DEPAKENE [Concomitant]

REACTIONS (2)
  - CAPILLARY LEAK SYNDROME [None]
  - FACE OEDEMA [None]
